FAERS Safety Report 12154365 (Version 1)
Quarter: 2016Q1

REPORT INFORMATION
  Report Type: Spontaneous
  Country: US (occurrence: None)
  Receive Date: 20160304
  Receipt Date: 20160304
  Transmission Date: 20160526
  Serious: Yes (Hospitalization)
  Sender: FDA-Public Use
  Company Number: None

PATIENT
  Age: 50 Year
  Sex: Female
  Weight: 61.69 kg

DRUGS (2)
  1. CELESTONE [Suspect]
     Active Substance: BETAMETHASONE
  2. MARCAINE [Suspect]
     Active Substance: BUPIVACAINE HYDROCHLORIDE

REACTIONS (11)
  - Mental impairment [None]
  - Presyncope [None]
  - Palpitations [None]
  - Dizziness [None]
  - Asthenia [None]
  - Feeling abnormal [None]
  - Abdominal pain upper [None]
  - Eye disorder [None]
  - Eating disorder [None]
  - Speech disorder [None]
  - Mobility decreased [None]

NARRATIVE: CASE EVENT DATE: 20160221
